FAERS Safety Report 17514253 (Version 1)
Quarter: 2020Q1

REPORT INFORMATION
  Report Type: Spontaneous
  Country: IT (occurrence: IT)
  Receive Date: 20200306
  Receipt Date: 20200306
  Transmission Date: 20200409
  Serious: Yes (Other)
  Sender: FDA-Public Use
  Company Number: IT-AUROBINDO-AUR-APL-2020-010919

PATIENT
  Age: 42 Year
  Sex: Female

DRUGS (2)
  1. AMOXICILLIN+CLAVULANIC ACID [Suspect]
     Active Substance: AMOXICILLIN\CLAVULANIC ACID
     Indication: DENTAL OPERATION
     Dosage: 2 DOSAGE FORM, ONCE A DAY
     Route: 048
     Dates: start: 20200118, end: 20200120
  2. OKI [Suspect]
     Active Substance: KETOPROFEN LYSINE
     Indication: DENTAL OPERATION
     Dosage: 1 DOSAGE FORM, TOTAL
     Route: 048
     Dates: start: 20200118, end: 20200120

REACTIONS (1)
  - Angioedema [Recovering/Resolving]

NARRATIVE: CASE EVENT DATE: 20200118
